FAERS Safety Report 16104258 (Version 4)
Quarter: 2021Q3

REPORT INFORMATION
  Report Type: Spontaneous
  Country: US (occurrence: US)
  Receive Date: 20190322
  Receipt Date: 20210921
  Transmission Date: 20211014
  Serious: No
  Sender: FDA-Public Use
  Company Number: US-BIOGEN-2019BI00702728

PATIENT
  Age: 37 Year
  Sex: Female

DRUGS (3)
  1. PLEGRIDY [Suspect]
     Active Substance: PEGINTERFERON BETA-1A
     Route: 058
  2. PLEGRIDY [Suspect]
     Active Substance: PEGINTERFERON BETA-1A
     Indication: MULTIPLE SCLEROSIS
     Route: 058
     Dates: start: 20190221, end: 20200107
  3. PLEGRIDY [Suspect]
     Active Substance: PEGINTERFERON BETA-1A
     Indication: MULTIPLE SCLEROSIS
     Route: 050
     Dates: start: 20190221

REACTIONS (10)
  - Injection site pain [Unknown]
  - Fatigue [Unknown]
  - Poor quality sleep [Not Recovered/Not Resolved]
  - Vertigo [Recovered/Resolved]
  - Injection site pruritus [Unknown]
  - Injection site erythema [Recovered/Resolved]
  - Product dose omission issue [Unknown]
  - Multiple sclerosis [Unknown]
  - Migraine [Recovered/Resolved]
  - Injection site bruising [Unknown]

NARRATIVE: CASE EVENT DATE: 20190221
